FAERS Safety Report 8818079 (Version 1)
Quarter: 2012Q4

REPORT INFORMATION
  Report Type: 
  Country: IT (occurrence: IT)
  Receive Date: 20121001
  Receipt Date: 20121001
  Transmission Date: 20130627
  Serious: Yes (Hospitalization)
  Sender: FDA-Public Use
  Company Number: IT-ASTRAZENECA-2012SE74615

PATIENT
  Sex: Male

DRUGS (12)
  1. MERREM [Suspect]
     Indication: BRONCHOPNEUMONIA
     Route: 042
     Dates: start: 20120915
  2. AMIODARONE [Interacting]
     Indication: ATRIAL FIBRILLATION
     Route: 048
     Dates: start: 20120803
  3. COUMADIN [Interacting]
     Indication: ATRIAL FIBRILLATION
     Route: 048
     Dates: start: 20100922, end: 20120919
  4. TARGOSID [Interacting]
     Indication: BRONCHOPNEUMONIA
     Dosage: 200mg/3 ml powder and solvent for solution for injection 400mg every other day
     Route: 042
     Dates: start: 20120915
  5. NEXIUM [Concomitant]
     Route: 048
  6. ZOLOFT [Concomitant]
  7. AVODART [Concomitant]
  8. TORVAST [Concomitant]
  9. LYRCA [Concomitant]
  10. DEURSIL [Concomitant]
  11. IDROPLURIVIT [Concomitant]
  12. TACHPIRINA [Concomitant]

REACTIONS (2)
  - Drug interaction [Unknown]
  - Hypocoagulable state [Recovered/Resolved]
